FAERS Safety Report 23427217 (Version 1)
Quarter: 2024Q1

REPORT INFORMATION
  Report Type: Spontaneous
  Country: US (occurrence: US)
  Receive Date: 20240122
  Receipt Date: 20240122
  Transmission Date: 20240410
  Serious: Yes (Other)
  Sender: FDA-Public Use
  Company Number: US-SUN PHARMACEUTICAL INDUSTRIES LTD-2024R1-427392

PATIENT
  Age: 15 Year
  Sex: Female

DRUGS (5)
  1. CALCITRIOL [Suspect]
     Active Substance: CALCITRIOL
     Indication: Hypocalcaemia
     Dosage: 0.01 MICROGRAM/KILOGRAM, DAILY
     Route: 065
  2. CALCITRIOL [Suspect]
     Active Substance: CALCITRIOL
     Indication: Hypoparathyroidism
     Dosage: 0.07 MICROGRAM/KILOGRAM, DAILY
     Route: 065
  3. POTASSIUM [Suspect]
     Active Substance: POTASSIUM
     Indication: Hypercalciuria
     Dosage: UNK
     Route: 065
  4. CALCIUM [Concomitant]
     Active Substance: CALCIUM
     Indication: Hypocalcaemia
     Dosage: 20 MILLIGRAM/KILOGRAM, DAILY
     Route: 065
  5. CALCIUM [Concomitant]
     Active Substance: CALCIUM
     Indication: Hypoparathyroidism

REACTIONS (4)
  - Drug ineffective [Unknown]
  - Microgenia [Recovered/Resolved]
  - Renal cyst [Recovered/Resolved]
  - Brachydactyly [Recovered/Resolved]
